FAERS Safety Report 15570685 (Version 1)
Quarter: 2018Q4

REPORT INFORMATION
  Report Type: Spontaneous
  Country: US (occurrence: US)
  Receive Date: 20181031
  Receipt Date: 20181031
  Transmission Date: 20190205
  Serious: No
  Sender: FDA-Public Use
  Company Number: US-INCYTE CORPORATION-2018IN010819

PATIENT

DRUGS (1)
  1. JAKAFI [Suspect]
     Active Substance: RUXOLITINIB
     Dosage: 10 MG, UNK
     Route: 065
     Dates: start: 201806

REACTIONS (4)
  - Dysphonia [Unknown]
  - Dizziness [Unknown]
  - Chills [Unknown]
  - Constipation [Unknown]

NARRATIVE: CASE EVENT DATE: 20181019
